FAERS Safety Report 11723280 (Version 1)
Quarter: 2015Q4

REPORT INFORMATION
  Report Type: Spontaneous
  Country: US (occurrence: US)
  Receive Date: 20151111
  Receipt Date: 20151111
  Transmission Date: 20160304
  Serious: Yes (Death, Other)
  Sender: FDA-Public Use
  Company Number: US-PFIZER INC-2015377984

PATIENT
  Age: 79 Year
  Sex: Female
  Weight: 50 kg

DRUGS (6)
  1. EPOGEN [Concomitant]
     Active Substance: ERYTHROPOIETIN
     Dosage: UNK, DAILY
  2. ATIVAN [Concomitant]
     Active Substance: LORAZEPAM
  3. XANAX [Concomitant]
     Active Substance: ALPRAZOLAM
  4. PROCARDIA XL [Suspect]
     Active Substance: NIFEDIPINE
     Indication: HYPERTENSION
     Dosage: 10 MG, UNK
     Route: 048
     Dates: start: 1988, end: 1988
  5. PROCARDIA XL [Suspect]
     Active Substance: NIFEDIPINE
     Dosage: 10 MG, UNK
     Route: 060
     Dates: start: 1988, end: 1992
  6. LISINOPRIL. [Concomitant]
     Active Substance: LISINOPRIL
     Indication: HYPERTENSION

REACTIONS (5)
  - Product preparation error [Unknown]
  - Arterial occlusive disease [Unknown]
  - Cerebral haemorrhage [Fatal]
  - Incorrect dose administered [Unknown]
  - Blood pressure systolic decreased [Unknown]

NARRATIVE: CASE EVENT DATE: 1988
